FAERS Safety Report 23252467 (Version 2)
Quarter: 2023Q4

REPORT INFORMATION
  Report Type: Spontaneous
  Country: CN (occurrence: CN)
  Receive Date: 20231201
  Receipt Date: 20231208
  Transmission Date: 20240110
  Serious: Yes (Life-Threatening, Hospitalization, Other)
  Sender: FDA-Public Use
  Company Number: CN-SA-2023SA368716

PATIENT
  Age: 68 Year
  Sex: Male

DRUGS (3)
  1. OXALIPLATIN [Suspect]
     Active Substance: OXALIPLATIN
     Indication: Gastric cancer
     Dosage: 200 MG IV FOR 3 CYCLES
     Route: 042
     Dates: start: 2022, end: 202206
  2. CAPECITABINE [Suspect]
     Active Substance: CAPECITABINE
     Indication: Gastric cancer
     Dosage: 1 G TWICE A DAY OS FOR 3 CYCLES
     Route: 048
     Dates: start: 2022, end: 202206
  3. TRASTUZUMAB [Suspect]
     Active Substance: TRASTUZUMAB
     Indication: Gastric cancer
     Dosage: 400 MG IV FOR THREE CYCLES
     Route: 042
     Dates: start: 2022, end: 202206

REACTIONS (14)
  - Anti-neutrophil cytoplasmic antibody positive vasculitis [Recovering/Resolving]
  - Proteinuria [Recovering/Resolving]
  - Haematuria [Recovering/Resolving]
  - Cough [Recovering/Resolving]
  - Productive cough [Recovering/Resolving]
  - Haemoptysis [Recovering/Resolving]
  - Epistaxis [Recovering/Resolving]
  - Pyrexia [Recovering/Resolving]
  - Chills [Recovering/Resolving]
  - Pulmonary alveolar haemorrhage [Recovered/Resolved]
  - Lung opacity [Recovered/Resolved]
  - Chronic sinusitis [Recovered/Resolved]
  - Glomerulonephritis rapidly progressive [Recovering/Resolving]
  - Pneumonia klebsiella [Recovering/Resolving]

NARRATIVE: CASE EVENT DATE: 20220101
